FAERS Safety Report 6468478-X (Version None)
Quarter: 2009Q4

REPORT INFORMATION
  Report Type: 
  Country: None (occurrence: None)
  Receive Date: 20091202
  Receipt Date: 20091202
  Transmission Date: 20100525
  Serious: Yes (Other)
  Sender: FDA-Public Use
  Company Number: None

PATIENT
  Sex: Female
  Weight: 48.5349 kg

DRUGS (2)
  1. METOPROLOL TARTRATE [Suspect]
     Indication: HYPERTENSION
     Dosage: 50 MG 2 X DAY ORAL
     Route: 048
     Dates: start: 20091122, end: 20091123
  2. LISINOPRIL [Suspect]
     Indication: HYPERTENSION
     Dosage: 20 MG 1 X DAY ORAL
     Route: 048
     Dates: start: 20091122, end: 20091123

REACTIONS (1)
  - HYPERSENSITIVITY [None]
